FAERS Safety Report 5620383-4 (Version None)
Quarter: 2008Q1

REPORT INFORMATION
  Report Type: 
  Country: None (occurrence: None)
  Receive Date: 20080208
  Receipt Date: 20080129
  Transmission Date: 20080703
  Serious: Yes (Hospitalization)
  Sender: FDA-Public Use
  Company Number: US-ELI_LILLY_AND_COMPANY-US200801006358

PATIENT
  Sex: Male

DRUGS (3)
  1. HUMALOG [Suspect]
     Route: 058
  2. LYRICA [Concomitant]
  3. MORPHINE SULFATE [Concomitant]

REACTIONS (3)
  - BLOOD GLUCOSE DECREASED [None]
  - NECK PAIN [None]
  - SUICIDAL IDEATION [None]
